FAERS Safety Report 11173455 (Version 3)
Quarter: 2015Q3

REPORT INFORMATION
  Report Type: Report from Study
  Country: AU (occurrence: AU)
  Receive Date: 20150609
  Receipt Date: 20150812
  Transmission Date: 20151125
  Serious: Yes (Hospitalization)
  Sender: FDA-Public Use
  Company Number: AU-ROCHE-1590342

PATIENT
  Age: 59 Year
  Sex: Female
  Weight: 103 kg

DRUGS (6)
  1. OMALIZUMAB [Suspect]
     Active Substance: OMALIZUMAB
     Route: 058
     Dates: start: 20150108
  2. OMALIZUMAB [Suspect]
     Active Substance: OMALIZUMAB
     Route: 058
     Dates: start: 20150709
  3. OMALIZUMAB [Suspect]
     Active Substance: OMALIZUMAB
     Indication: ASTHMA
     Route: 058
     Dates: start: 20140123
  4. OMALIZUMAB [Suspect]
     Active Substance: OMALIZUMAB
     Route: 058
     Dates: start: 20150212
  5. OMALIZUMAB [Suspect]
     Active Substance: OMALIZUMAB
     Route: 058
     Dates: start: 20150219
  6. OMALIZUMAB [Suspect]
     Active Substance: OMALIZUMAB
     Route: 058
     Dates: start: 20150530, end: 20150530

REACTIONS (3)
  - Overdose [Unknown]
  - Asthma [Recovering/Resolving]
  - Lower respiratory tract infection [Recovering/Resolving]

NARRATIVE: CASE EVENT DATE: 20150115
